FAERS Safety Report 4368861-2 (Version None)
Quarter: 2004Q2

REPORT INFORMATION
  Report Type: 
  Country: None (occurrence: None)
  Receive Date: 20040525
  Receipt Date: 20040513
  Transmission Date: 20050107
  Serious: No
  Sender: FDA-Public Use
  Company Number: 04P-163-0261018-00

PATIENT
  Age: 40 Year
  Sex: Female
  Weight: 68.0396 kg

DRUGS (9)
  1. GENGRAF [Suspect]
     Indication: PROPHYLAXIS AGAINST TRANSPLANT REJECTION
     Dosage: 100 MG, 2 IN 1 D, PER ORAL; 75 MG, 2 IN 1 D, PER ORAL
     Route: 048
     Dates: start: 20010101, end: 20031201
  2. GENGRAF [Suspect]
     Indication: PROPHYLAXIS AGAINST TRANSPLANT REJECTION
     Dosage: 100 MG, 2 IN 1 D, PER ORAL; 75 MG, 2 IN 1 D, PER ORAL
     Route: 048
     Dates: start: 20031201
  3. PREDNISONE [Concomitant]
  4. BACTRIM [Concomitant]
  5. ATENOLOL [Concomitant]
  6. AMLODIPINE BESYLATE [Concomitant]
  7. MULTI-VITAMINS [Concomitant]
  8. OMEPRAZOLE [Concomitant]
  9. OSCAL+D [Concomitant]

REACTIONS (1)
  - BREAST CANCER IN SITU [None]
